FAERS Safety Report 19486827 (Version 1)
Quarter: 2021Q3

REPORT INFORMATION
  Report Type: Spontaneous
  Country: US (occurrence: US)
  Receive Date: 20210702
  Receipt Date: 20210702
  Transmission Date: 20211014
  Serious: Yes (Other)
  Sender: FDA-Public Use
  Company Number: US-TOLMAR, INC.-21US028530

PATIENT
  Age: 35 Year
  Sex: Female

DRUGS (4)
  1. FOLLITROPIN ALFA [Suspect]
     Active Substance: FOLLITROPIN ALFA
     Indication: CONTROLLED OVARIAN STIMULATION
     Dosage: 900 UNITS
  2. CETROTIDE [Suspect]
     Active Substance: CETRORELIX ACETATE
     Indication: CONTROLLED OVARIAN STIMULATION
     Dosage: 0.25 MILLIGRAM
  3. ELIGARD [Suspect]
     Active Substance: LEUPROLIDE ACETATE
     Indication: CONTROLLED OVARIAN STIMULATION
     Dosage: 1 MG/0.2 ML
  4. CHORIONIC GONADOTROPIN [Suspect]
     Active Substance: CHORIOGONADOTROPIN ALFA
     Indication: CONTROLLED OVARIAN STIMULATION
     Dosage: 5000 UNITS

REACTIONS (2)
  - Off label use [Unknown]
  - Renal cell carcinoma [Unknown]
